FAERS Safety Report 11100077 (Version 1)
Quarter: 2015Q2

REPORT INFORMATION
  Report Type: Spontaneous
  Country: FR (occurrence: FR)
  Receive Date: 20150508
  Receipt Date: 20150508
  Transmission Date: 20150821
  Serious: Yes (Hospitalization)
  Sender: FDA-Public Use
  Company Number: FR-SA-2015SA060349

PATIENT
  Age: 58 Year
  Sex: Female

DRUGS (13)
  1. VANCOMYCIN MYLAN [Suspect]
     Active Substance: VANCOMYCIN
     Indication: ARTHRITIS INFECTIVE
     Dosage: DOSE:2 G DURING 3 D THEN 3 G/D
     Route: 048
     Dates: start: 20150227, end: 20150318
  2. GENTAMICIN. [Suspect]
     Active Substance: GENTAMICIN
     Indication: ARTHRITIS INFECTIVE
     Route: 048
     Dates: start: 20150227, end: 20150302
  3. OXYNORM [Suspect]
     Active Substance: OXYCODONE HYDROCHLORIDE
     Indication: PAIN
     Route: 048
     Dates: start: 20150226, end: 20150306
  4. INEXIUM [Suspect]
     Active Substance: ESOMEPRAZOLE
     Indication: PROPHYLAXIS AGAINST GASTROINTESTINAL ULCER
     Route: 048
     Dates: start: 20150207, end: 20150302
  5. LOVENOX [Suspect]
     Active Substance: ENOXAPARIN SODIUM
     Indication: THROMBOSIS PROPHYLAXIS
     Route: 048
     Dates: start: 20150227, end: 20150311
  6. AUGMENTIN [Suspect]
     Active Substance: AMOXICILLIN\CLAVULANATE POTASSIUM
     Indication: ARTHRITIS INFECTIVE
     Dosage: POWDER FOR ORAL SUSPENSION IN DOSE SACHET
     Route: 048
     Dates: start: 20150318, end: 20150325
  7. TRAMADOL BASE [Suspect]
     Active Substance: TRAMADOL
     Indication: PAIN
     Route: 048
     Dates: start: 20150306, end: 20150325
  8. OROZAMUDOL [Suspect]
     Active Substance: TRAMADOL
     Indication: PAIN
     Dosage: DOSE:150 MG DURING 7 D THEN 50M/D
     Route: 048
     Dates: start: 20150227, end: 20150325
  9. FLAGYL [Suspect]
     Active Substance: METRONIDAZOLE\METRONIDAZOLE HYDROCHLORIDE
     Indication: ARTHRITIS INFECTIVE
     Route: 048
     Dates: start: 20150306, end: 20150319
  10. FLAGYL [Suspect]
     Active Substance: METRONIDAZOLE\METRONIDAZOLE HYDROCHLORIDE
     Indication: ARTHRITIS INFECTIVE
     Route: 048
     Dates: start: 20150325, end: 20150326
  11. AMOXICILLIN. [Suspect]
     Active Substance: AMOXICILLIN
     Indication: ARTHRITIS INFECTIVE
     Route: 048
     Dates: start: 20150318, end: 20150325
  12. TAZOCILLINE [Suspect]
     Active Substance: PIPERACILLIN SODIUM\TAZOBACTAM SODIUM
     Indication: ARTHRITIS INFECTIVE
     Route: 048
     Dates: start: 20150227, end: 20150306
  13. LYRICA [Suspect]
     Active Substance: PREGABALIN
     Indication: PAIN
     Dosage: DOSE:75 MG DURING 7 DAYS THEN 50 MG/D
     Route: 048
     Dates: start: 20150226, end: 20150306

REACTIONS (1)
  - Toxic skin eruption [Recovered/Resolved]

NARRATIVE: CASE EVENT DATE: 20150322
